FAERS Safety Report 8312155-7 (Version None)
Quarter: 2012Q2

REPORT INFORMATION
  Report Type: 
  Country: None (occurrence: None)
  Receive Date: 20120425
  Receipt Date: 20120417
  Transmission Date: 20120825
  Serious: Yes (Other)
  Sender: FDA-Public Use
  Company Number: US-US-EMD SERONO, INC.-7049242

PATIENT
  Sex: Female

DRUGS (2)
  1. REBIF [Suspect]
     Indication: MULTIPLE SCLEROSIS
     Route: 058
     Dates: start: 20070326, end: 20101231
  2. REBIF [Suspect]
     Route: 058
     Dates: start: 20120319

REACTIONS (2)
  - BREAST CANCER [None]
  - HOT FLUSH [None]
